FAERS Safety Report 24787468 (Version 2)
Quarter: 2025Q1

REPORT INFORMATION
  Report Type: Spontaneous
  Country: PT (occurrence: PT)
  Receive Date: 20241230
  Receipt Date: 20250207
  Transmission Date: 20250409
  Serious: Yes (Hospitalization, Other)
  Sender: Steriscience PTE
  Company Number: PT-STERISCIENCE B.V.-2024-ST-002189

PATIENT
  Age: 62 Year
  Sex: Female

DRUGS (4)
  1. VANCOMYCIN [Suspect]
     Active Substance: VANCOMYCIN
     Indication: Pyomyositis
     Route: 065
  2. VANCOMYCIN [Suspect]
     Active Substance: VANCOMYCIN
     Indication: Staphylococcal infection
  3. MEROPENEM [Suspect]
     Active Substance: MEROPENEM
     Indication: Pyomyositis
     Route: 065
  4. MEROPENEM [Suspect]
     Active Substance: MEROPENEM
     Indication: Staphylococcal infection

REACTIONS (2)
  - Leukopenia [None]
  - Neutropenia [None]
